FAERS Safety Report 4498997-7 (Version None)
Quarter: 2004Q4

REPORT INFORMATION
  Report Type: 
  Country: None (occurrence: None)
  Receive Date: 20041108
  Receipt Date: 20041025
  Transmission Date: 20050328
  Serious: Yes (Other)
  Sender: FDA-Public Use
  Company Number: 2004-DE-05583GD

PATIENT
  Age: 59 Year
  Sex: Male

DRUGS (4)
  1. ASPIRIN [Suspect]
     Dosage: 5 ENTERIC-COATED ASPIRIN (325 MG) TABLETS DAILY, (325 MG), PO
     Route: 048
  2. ALPRAZOLAM [Suspect]
     Dosage: 0.5 MG (AT BEDTIME), PO
     Route: 048
  3. PROPOXYPHENE/ACETAMINOPHEN (APOREX) [Suspect]
     Dosage: SEE TEXT (SEE TEXT, EVERY 4HOURS AS NEEDED), PO
     Route: 048
  4. ROLAIDS [Suspect]
     Dosage: 15 - 25 TABLETS (SEE TEXT), PO
     Route: 048

REACTIONS (23)
  - ALKALOSIS [None]
  - ANOREXIA [None]
  - ASTERIXIS [None]
  - BLOOD CHLORIDE DECREASED [None]
  - BLOOD PH INCREASED [None]
  - BLOOD POTASSIUM DECREASED [None]
  - BLOOD PRESSURE INCREASED [None]
  - CONFABULATION [None]
  - CONFUSIONAL STATE [None]
  - DIFFICULTY IN WALKING [None]
  - DYSARTHRIA [None]
  - DYSPEPSIA [None]
  - GASTRIC ULCER [None]
  - HAEMATEMESIS [None]
  - HYPERCALCAEMIA [None]
  - HYPOREFLEXIA [None]
  - MILK-ALKALI SYNDROME [None]
  - OESOPHAGEAL ULCER [None]
  - PCO2 INCREASED [None]
  - PO2 DECREASED [None]
  - RENAL FAILURE [None]
  - RESPIRATORY RATE INCREASED [None]
  - SKIN TURGOR DECREASED [None]
